FAERS Safety Report 18480677 (Version 1)
Quarter: 2020Q4

REPORT INFORMATION
  Report Type: Spontaneous
  Country: GB (occurrence: GB)
  Receive Date: 20201109
  Receipt Date: 20201109
  Transmission Date: 20210114
  Serious: Yes (Hospitalization, Other)
  Sender: FDA-Public Use
  Company Number: GB-TEVA-2020-GB-1845418

PATIENT
  Age: 79 Year
  Sex: Male
  Weight: 80 kg

DRUGS (1)
  1. ATORVASTATIN [Suspect]
     Active Substance: ATORVASTATIN
     Dosage: 10 MILLIGRAM DAILY; TO BE TAKEN AT NIGHT.,
     Route: 065
     Dates: start: 2004, end: 20201006

REACTIONS (3)
  - Acute hepatic failure [Recovering/Resolving]
  - Liver function test abnormal [Recovering/Resolving]
  - Hepatitis [Unknown]
